FAERS Safety Report 7643417-4 (Version None)
Quarter: 2011Q3

REPORT INFORMATION
  Report Type: 
  Country: None (occurrence: None)
  Receive Date: 20110729
  Receipt Date: 20110720
  Transmission Date: 20111222
  Serious: Yes (Other)
  Sender: FDA-Public Use
  Company Number: US-ALEXION-A201100072

PATIENT
  Sex: Female

DRUGS (10)
  1. SOLIRIS [Suspect]
     Indication: PAROXYSMAL NOCTURNAL HAEMOGLOBINURIA
     Dosage: 600 MG, QW
     Route: 042
     Dates: start: 20100120, end: 20100209
  2. VITAMIN B-12 [Concomitant]
     Indication: VITAMIN B12 DEFICIENCY
     Dosage: UNK
  3. ASCORBIC ACID [Concomitant]
     Dosage: UNK
  4. FOLIC ACID [Concomitant]
     Dosage: UNK
  5. PRISTIQ [Concomitant]
     Dosage: UNK
  6. SOLIRIS [Suspect]
     Dosage: 900 MG, Q2W
     Route: 042
     Dates: start: 20100216
  7. XANAX [Concomitant]
     Dosage: UNK
  8. AMBIEN [Concomitant]
     Indication: INSOMNIA
     Dosage: UNK
  9. WELLBUTRIN XL [Concomitant]
     Dosage: UNK
  10. ZOFRAN [Concomitant]
     Dosage: PRN

REACTIONS (5)
  - PREGNANCY [None]
  - HELLP SYNDROME [None]
  - FATIGUE [None]
  - ANAEMIA [None]
  - WEIGHT INCREASED [None]
